FAERS Safety Report 18349970 (Version 1)
Quarter: 2020Q4

REPORT INFORMATION
  Report Type: Spontaneous
  Country: US (occurrence: US)
  Receive Date: 20201006
  Receipt Date: 20201006
  Transmission Date: 20210114
  Serious: Yes (Death)
  Sender: FDA-Public Use
  Company Number: None

PATIENT
  Age: 50 Year
  Sex: Male
  Weight: 147.42 kg

DRUGS (1)
  1. REMDESIVIR. [Suspect]
     Active Substance: REMDESIVIR
     Indication: COVID-19 TREATMENT

REACTIONS (5)
  - Cardio-respiratory arrest [None]
  - Pulseless electrical activity [None]
  - COVID-19 pneumonia [None]
  - Fibrin D dimer increased [None]
  - Transfusion [None]

NARRATIVE: CASE EVENT DATE: 20201001
